FAERS Safety Report 6973338-1 (Version None)
Quarter: 2010Q3

REPORT INFORMATION
  Report Type: 
  Country: None (occurrence: None)
  Receive Date: 20100909
  Receipt Date: 20100831
  Transmission Date: 20110219
  Serious: Yes (Death, Other)
  Sender: FDA-Public Use
  Company Number: US-PFIZER INC-2010099416

PATIENT
  Sex: Female
  Weight: 90.703 kg

DRUGS (7)
  1. GEODON [Suspect]
     Indication: MAJOR DEPRESSION
     Dosage: 20 MG, DAILY
     Dates: start: 20100401
  2. GEODON [Suspect]
     Indication: ANXIETY
     Dosage: 80 MG, 2X/DAY
     Dates: start: 20100501
  3. GEODON [Suspect]
     Indication: BIPOLAR DISORDER
  4. LEXAPRO [Suspect]
     Indication: MAJOR DEPRESSION
     Dosage: 30 MG, 1X/DAY
     Dates: start: 20090204, end: 20100628
  5. LEXAPRO [Suspect]
     Indication: BIPOLAR DISORDER
  6. NORTRIPTYLINE [Concomitant]
     Dosage: 50 MG, DAILY
  7. XANAX [Concomitant]
     Dosage: FREQUENCY: 2X/DAY AS NEEDED,
     Dates: start: 20090204, end: 20100628

REACTIONS (4)
  - COMPLETED SUICIDE [None]
  - DYSKINESIA [None]
  - HERPES ZOSTER [None]
  - NERVOUSNESS [None]
